FAERS Safety Report 6478415-X (Version None)
Quarter: 2009Q4

REPORT INFORMATION
  Report Type: 
  Country: None (occurrence: None)
  Receive Date: 20091202
  Receipt Date: 20091116
  Transmission Date: 20100525
  Serious: Yes (Other)
  Sender: FDA-Public Use
  Company Number: 1000010422

PATIENT
  Sex: Female

DRUGS (3)
  1. ESCITALOPRAM [Suspect]
  2. AERIUS (TABLETS) [Concomitant]
  3. NAZONEX (TABLETS) [Concomitant]

REACTIONS (13)
  - AGGRESSION [None]
  - ANXIETY [None]
  - DECREASED APPETITE [None]
  - DIZZINESS [None]
  - DRUG WITHDRAWAL SYNDROME [None]
  - DYSARTHRIA [None]
  - FEELING ABNORMAL [None]
  - MALAISE [None]
  - MULTIPLE ALLERGIES [None]
  - NAUSEA [None]
  - PARAESTHESIA [None]
  - SUICIDAL IDEATION [None]
  - SWOLLEN TONGUE [None]
